FAERS Safety Report 9621014 (Version 1)
Quarter: 2013Q4

REPORT INFORMATION
  Report Type: Spontaneous
  Country: FR (occurrence: FR)
  Receive Date: 20131015
  Receipt Date: 20131015
  Transmission Date: 20140711
  Serious: Yes (Life-Threatening, Hospitalization, Other)
  Sender: FDA-Public Use
  Company Number: FR-JNJFOC-20131006409

PATIENT
  Age: 60 Year
  Sex: Female
  Weight: 111 kg

DRUGS (2)
  1. XARELTO [Suspect]
     Indication: KNEE ARTHROPLASTY
     Route: 048
     Dates: start: 201307, end: 20130831
  2. XARELTO [Suspect]
     Indication: THROMBOSIS PROPHYLAXIS
     Route: 048
     Dates: start: 201307, end: 20130831

REACTIONS (3)
  - Thrombophlebitis [Unknown]
  - Pulmonary embolism [Unknown]
  - Drug ineffective [Unknown]
